FAERS Safety Report 6455625-9 (Version None)
Quarter: 2009Q4

REPORT INFORMATION
  Report Type: 
  Country: None (occurrence: None)
  Receive Date: 20091125
  Receipt Date: 20090821
  Transmission Date: 20100525
  Serious: No
  Sender: FDA-Public Use
  Company Number: US-ABBOTT-09P-163-0593934-00

PATIENT
  Sex: Male
  Weight: 99.88 kg

DRUGS (2)
  1. SIMCOR [Suspect]
     Indication: BLOOD LACTATE DEHYDROGENASE
  2. SIMCOR [Suspect]
     Indication: HIGH DENSITY LIPOPROTEIN

REACTIONS (4)
  - BURNING SENSATION [None]
  - DIZZINESS [None]
  - INCORRECT DRUG ADMINISTRATION DURATION [None]
  - PANIC REACTION [None]
